FAERS Safety Report 9057630 (Version 2)
Quarter: 2013Q1

REPORT INFORMATION
  Report Type: Spontaneous
  Country: US (occurrence: US)
  Receive Date: 20130204
  Receipt Date: 20130307
  Transmission Date: 20140127
  Serious: Yes (Other)
  Sender: FDA-Public Use
  Company Number: US-PFIZER INC-2013044392

PATIENT
  Age: 78 Year
  Sex: Female
  Weight: 45.35 kg

DRUGS (1)
  1. ADVIL PM [Suspect]
     Indication: SLEEP DISORDER
     Dosage: 200/38 MG, DAILY
     Route: 048
     Dates: start: 20130131

REACTIONS (4)
  - Choking [Unknown]
  - Product quality issue [Unknown]
  - Dysphagia [Unknown]
  - Throat irritation [Recovered/Resolved]
